FAERS Safety Report 20754703 (Version 1)
Quarter: 2022Q2

REPORT INFORMATION
  Report Type: Spontaneous
  Country: US (occurrence: None)
  Receive Date: 20220426
  Receipt Date: 20220426
  Transmission Date: 20220721
  Serious: No
  Sender: FDA-Public Use
  Company Number: US-ROCHE-2890838

PATIENT
  Sex: Male
  Weight: 95.340 kg

DRUGS (5)
  1. ESBRIET [Suspect]
     Active Substance: PIRFENIDONE
     Indication: Pulmonary fibrosis
     Dosage: NO
     Route: 048
     Dates: start: 202108
  2. ATORVASTATIN [Concomitant]
     Active Substance: ATORVASTATIN
  3. ASPIRIN [Concomitant]
     Active Substance: ASPIRIN
  4. LISINOPRIL [Concomitant]
     Active Substance: LISINOPRIL
  5. KEPPRA [Concomitant]
     Active Substance: LEVETIRACETAM

REACTIONS (6)
  - Dizziness [Recovering/Resolving]
  - Nausea [Recovering/Resolving]
  - Off label use [Unknown]
  - Aortic aneurysm [Unknown]
  - Fall [Unknown]
  - Decreased appetite [Unknown]
